FAERS Safety Report 4619527-2 (Version None)
Quarter: 2005Q1

REPORT INFORMATION
  Report Type: 
  Country: None (occurrence: None)
  Receive Date: 20050318
  Receipt Date: 20050318
  Transmission Date: 20050727
  Serious: Yes (Hospitalization)
  Sender: FDA-Public Use
  Company Number: None

PATIENT
  Sex: Female
  Weight: 49.8957 kg

DRUGS (6)
  1. DEMEROL [Suspect]
     Indication: PAIN
     Dates: start: 20041028
  2. DEMEROL [Suspect]
     Indication: PAIN
     Dates: start: 20041028
  3. NS WITH 20 MEQ KCL [Concomitant]
  4. FLAGYL [Concomitant]
  5. DEMEROL/VISTARIL [Concomitant]
  6. SOLU-MEDROL [Concomitant]

REACTIONS (1)
  - GRAND MAL CONVULSION [None]
